FAERS Safety Report 20364266 (Version 1)
Quarter: 2022Q1

REPORT INFORMATION
  Report Type: Spontaneous
  Country: US (occurrence: None)
  Receive Date: 20220121
  Receipt Date: 20220121
  Transmission Date: 20220423
  Serious: No
  Sender: FDA-Public Use
  Company Number: None

PATIENT
  Age: 58 Year
  Sex: Male

DRUGS (1)
  1. BAMLANIVIMAB\ETESEVIMAB [Suspect]
     Active Substance: BAMLANIVIMAB\ETESEVIMAB
     Dates: start: 20211112, end: 20211112

REACTIONS (4)
  - Rash [None]
  - Erythema [None]
  - Muscle spasms [None]
  - Flushing [None]

NARRATIVE: CASE EVENT DATE: 20211112
